FAERS Safety Report 4388833-1 (Version None)
Quarter: 2004Q3

REPORT INFORMATION
  Report Type: 
  Country: None (occurrence: None)
  Receive Date: 20040702
  Receipt Date: 20040528
  Transmission Date: 20050211
  Serious: Yes (Other)
  Sender: FDA-Public Use
  Company Number: PHEH2004US05984

PATIENT
  Age: 79 Year
  Sex: Female

DRUGS (4)
  1. MIACALCIN [Suspect]
     Indication: OSTEOPOROSIS
     Dosage: 200 IU, QD
     Route: 045
     Dates: start: 20040221, end: 20040622
  2. ASPIRIN [Concomitant]
     Dosage: 2 TAB QAM
  3. CALCIUM W/VITAMIN D NOS [Concomitant]
     Dosage: QD
  4. MULTI-VITAMINS [Concomitant]
     Dosage: QD

REACTIONS (5)
  - FALL [None]
  - FOOT FRACTURE [None]
  - HOARSENESS [None]
  - PHARYNGOLARYNGEAL PAIN [None]
  - RHINORRHOEA [None]
